FAERS Safety Report 12572046 (Version 1)
Quarter: 2016Q3

REPORT INFORMATION
  Report Type: Spontaneous
  Country: US (occurrence: US)
  Receive Date: 20160719
  Receipt Date: 20160719
  Transmission Date: 20161109
  Serious: No
  Sender: FDA-Public Use
  Company Number: US-BAUSCH-BL-2015-026236

PATIENT
  Age: 49 Year
  Sex: Female
  Weight: 116.68 kg

DRUGS (8)
  1. COCONUT OIL [Concomitant]
     Active Substance: COCONUT OIL
     Indication: PRODUCT USED FOR UNKNOWN INDICATION
  2. LEVOTHYROXINE. [Concomitant]
     Active Substance: LEVOTHYROXINE
     Indication: PRODUCT USED FOR UNKNOWN INDICATION
  3. VITAMIN E [Concomitant]
     Active Substance: .ALPHA.-TOCOPHEROL
     Indication: PRODUCT USED FOR UNKNOWN INDICATION
  4. OXYCODONE [Concomitant]
     Active Substance: OXYCODONE
     Indication: PRODUCT USED FOR UNKNOWN INDICATION
  5. XIFAXAN [Suspect]
     Active Substance: RIFAXIMIN
     Indication: IRRITABLE BOWEL SYNDROME
     Route: 048
     Dates: start: 20151023
  6. XIFAXAN [Suspect]
     Active Substance: RIFAXIMIN
     Indication: DIARRHOEA
  7. FISH OIL [Concomitant]
     Active Substance: FISH OIL
     Indication: PRODUCT USED FOR UNKNOWN INDICATION
  8. METFORMIN [Concomitant]
     Active Substance: METFORMIN HYDROCHLORIDE
     Indication: PRODUCT USED FOR UNKNOWN INDICATION

REACTIONS (3)
  - Diarrhoea [Unknown]
  - Drug dose omission [Unknown]
  - Vulvovaginal mycotic infection [Not Recovered/Not Resolved]

NARRATIVE: CASE EVENT DATE: 20151026
